FAERS Safety Report 25993838 (Version 1)
Quarter: 2025Q4

REPORT INFORMATION
  Report Type: Other
  Country: US (occurrence: US)
  Receive Date: 20251104
  Receipt Date: 20251104
  Transmission Date: 20260117
  Serious: Yes (Other)
  Sender: ALVOGEN
  Company Number: US-ALVOGEN-2025098954

PATIENT
  Age: 63 Year
  Sex: Female

DRUGS (4)
  1. LENALIDOMIDE [Suspect]
     Active Substance: LENALIDOMIDE
     Indication: Plasma cell myeloma
     Dosage: 6 OF LENALIDOMIDE, BORTEZOMIB, AND DEXAMETHASONE
  2. LENALIDOMIDE [Suspect]
     Active Substance: LENALIDOMIDE
     Indication: Plasma cell myeloma
     Dosage: MAINTENANCE FOR APPROXIMATELY FOUR MONTHS
  3. BORTEZOMIB [Concomitant]
     Active Substance: BORTEZOMIB
     Indication: Plasma cell myeloma
     Dosage: 6 OF LENALIDOMIDE, BORTEZOMIB, AND DEXAMETHASONE
  4. DEXAMETHASONE [Concomitant]
     Active Substance: DEXAMETHASONE
     Indication: Plasma cell myeloma
     Dosage: 6 OF LENALIDOMIDE, BORTEZOMIB, AND DEXAMETHASONE

REACTIONS (2)
  - Clonal haematopoiesis [Recovering/Resolving]
  - Pancytopenia [Recovered/Resolved]
